FAERS Safety Report 8987797 (Version 3)
Quarter: 2013Q3

REPORT INFORMATION
  Report Type: Report from Study
  Country: TW (occurrence: TW)
  Receive Date: 20121227
  Receipt Date: 20130905
  Transmission Date: 20140515
  Serious: Yes (Hospitalization)
  Sender: FDA-Public Use
  Company Number: TW-GLAXOSMITHKLINE-A1006490A

PATIENT
  Age: 44 Year
  Sex: Female
  Weight: 43 kg

DRUGS (5)
  1. BELIMUMAB [Suspect]
     Indication: SYSTEMIC LUPUS ERYTHEMATOSUS
     Dosage: 1MGK CYCLIC
     Route: 042
     Dates: start: 20071227
  2. PREDNISOLONE [Concomitant]
     Indication: SYSTEMIC LUPUS ERYTHEMATOSUS
     Dosage: 5MG PER DAY
     Route: 048
     Dates: start: 20090823
  3. HYDROXYCHLOROQUINE SULFATE [Concomitant]
     Indication: SYSTEMIC LUPUS ERYTHEMATOSUS
     Dosage: 200MG PER DAY
     Route: 048
     Dates: start: 20071023
  4. ATORVASTATIN [Concomitant]
     Indication: HYPERLIPIDAEMIA
     Dosage: 5MG PER DAY
     Route: 048
     Dates: start: 20080108
  5. ARTIFICIAL TEARS [Concomitant]
     Indication: SJOGREN^S SYNDROME
     Dosage: 1DROP FOUR TIMES PER DAY
     Route: 061
     Dates: start: 20071023

REACTIONS (3)
  - Cytomegalovirus infection [Recovered/Resolved]
  - Rectal ulcer [Recovered/Resolved]
  - Streptococcal bacteraemia [Recovered/Resolved]
